FAERS Safety Report 11107116 (Version 5)
Quarter: 2015Q3

REPORT INFORMATION
  Report Type: Report from Study
  Country: US (occurrence: US)
  Receive Date: 20150512
  Receipt Date: 20150709
  Transmission Date: 20151125
  Serious: Yes (Hospitalization)
  Sender: FDA-Public Use
  Company Number: US-009507513-1505USA003180

PATIENT
  Age: 51 Year
  Sex: Male
  Weight: 51 kg

DRUGS (18)
  1. BLOOD CELLS, RED [Concomitant]
     Active Substance: HUMAN BLOOD CELLS
     Indication: HAEMOGLOBIN DECREASED
     Dosage: 1 UNIT, ONCE
     Route: 042
     Dates: start: 20150429, end: 20150429
  2. METHADONE HYDROCHLORIDE. [Concomitant]
     Active Substance: METHADONE HYDROCHLORIDE
     Indication: NECK PAIN
     Dosage: TOTAL DAILY DOSE 5MG, PRN
     Route: 048
     Dates: start: 20150220, end: 201505
  3. HYDROMORPHONE [Concomitant]
     Active Substance: HYDROMORPHONE
     Indication: NECK PAIN
     Dosage: TOTAL DAILY DOSE 16MG, QID
     Route: 048
     Dates: start: 20150309, end: 201505
  4. OXYCODONE HYDROCHLORIDE. [Concomitant]
     Active Substance: OXYCODONE HYDROCHLORIDE
     Indication: NECK PAIN
  5. CYMBALTA [Concomitant]
     Active Substance: DULOXETINE HYDROCHLORIDE
     Indication: NECK PAIN
     Dosage: 30 MG, QD
     Route: 048
     Dates: start: 20150220, end: 201505
  6. MIRALAX [Concomitant]
     Active Substance: POLYETHYLENE GLYCOL 3350
     Indication: CONSTIPATION
     Dosage: 17 G, QD
     Route: 048
     Dates: start: 20150220, end: 201505
  7. HYDROMORPHONE [Concomitant]
     Active Substance: HYDROMORPHONE
     Indication: PAIN IN JAW
  8. LEVOTHYROXINE SODIUM. [Concomitant]
     Active Substance: LEVOTHYROXINE SODIUM
     Indication: BLOOD THYROID STIMULATING HORMONE INCREASED
     Dosage: 75 MG, QD
     Route: 048
     Dates: start: 20150317, end: 201505
  9. COMPAZINE (PROCHLORPERAZINE MALEATE) [Concomitant]
     Indication: PROPHYLAXIS OF NAUSEA AND VOMITING
     Dosage: TOTAL DAILY DOSE 40MG, PRN
     Route: 048
     Dates: start: 20150429, end: 201505
  10. PEMBROLIZUMAB. [Suspect]
     Active Substance: PEMBROLIZUMAB
     Indication: SQUAMOUS CELL CARCINOMA OF HEAD AND NECK
     Dosage: 200 MG, Q3W
     Route: 042
     Dates: start: 20150501, end: 20150501
  11. TIZANIDINE HYDROCHLORIDE. [Concomitant]
     Active Substance: TIZANIDINE HYDROCHLORIDE
     Indication: MUSCLE SPASMS
     Dosage: TOTAL DAILY DOSE 12 MG, TID
     Route: 048
     Dates: start: 20150220, end: 201505
  12. LACTULOSE. [Concomitant]
     Active Substance: LACTULOSE
     Indication: CONSTIPATION
     Dosage: 30ML, TID
     Route: 048
     Dates: start: 20150309, end: 201505
  13. ATIVAN [Concomitant]
     Active Substance: LORAZEPAM
     Indication: ANXIETY
     Dosage: 1 MG, QD
     Route: 048
     Dates: start: 20150112, end: 201505
  14. OXYCODONE HYDROCHLORIDE. [Concomitant]
     Active Substance: OXYCODONE HYDROCHLORIDE
     Indication: PAIN IN JAW
     Dosage: 120MG,  TID
     Route: 048
     Dates: start: 20150309, end: 201505
  15. MUCINEX [Concomitant]
     Active Substance: GUAIFENESIN
     Indication: CHEST PAIN
     Dosage: 600 MG, BID
     Route: 048
     Dates: start: 20141214, end: 201505
  16. SENOKOT (SENNOSIDES) [Concomitant]
     Indication: CONSTIPATION
     Dosage: TOTAL DAILY DOSE 68.8 MG, BID
     Route: 048
     Dates: start: 20150302, end: 201505
  17. ZOFRAN [Concomitant]
     Active Substance: ONDANSETRON HYDROCHLORIDE
     Indication: PROPHYLAXIS OF NAUSEA AND VOMITING
     Dosage: 8MG, BID
     Route: 048
     Dates: start: 20150429, end: 201505
  18. MOTRIN [Concomitant]
     Active Substance: IBUPROFEN
     Indication: PAIN
     Dosage: 600MG, QID
     Route: 048
     Dates: start: 20150409, end: 201505

REACTIONS (1)
  - Pulmonary embolism [Recovering/Resolving]

NARRATIVE: CASE EVENT DATE: 20150505
